FAERS Safety Report 20201731 (Version 2)
Quarter: 2021Q4

REPORT INFORMATION
  Report Type: Spontaneous
  Country: IT (occurrence: IT)
  Receive Date: 20211217
  Receipt Date: 20211223
  Transmission Date: 20220303
  Serious: Yes (Life-Threatening, Hospitalization, Other)
  Sender: FDA-Public Use
  Company Number: IT-009507513-2111ITA001694

PATIENT
  Age: 72 Year
  Sex: Male

DRUGS (5)
  1. ROCURONIUM [Interacting]
     Active Substance: ROCURONIUM BROMIDE
     Indication: Respiratory failure
     Dosage: CONTINOUS
  2. ROCURONIUM [Interacting]
     Active Substance: ROCURONIUM BROMIDE
     Indication: Legionella infection
     Dosage: UNK
  3. ROCURONIUM [Interacting]
     Active Substance: ROCURONIUM BROMIDE
     Indication: Neuromuscular blockade
  4. SUGAMMADEX [Interacting]
     Active Substance: SUGAMMADEX
     Indication: Neuromuscular blockade reversal
     Dosage: 2 MILLIGRAM/KILOGRAM
  5. SUGAMMADEX [Interacting]
     Active Substance: SUGAMMADEX
     Dosage: 16 MILLIGRAM/KILOGRAM

REACTIONS (4)
  - Neuromuscular block prolonged [Recovered/Resolved]
  - Poisoning [Recovered/Resolved]
  - Drug interaction [Unknown]
  - Respiration abnormal [Unknown]
